FAERS Safety Report 26205915 (Version 1)
Quarter: 2025Q4

REPORT INFORMATION
  Report Type: Spontaneous
  Country: US (occurrence: US)
  Receive Date: 20251229
  Receipt Date: 20251229
  Transmission Date: 20260118
  Serious: No
  Sender: ROCHE
  Company Number: US-ROCHE-10000465431

PATIENT

DRUGS (2)
  1. CELLCEPT [Suspect]
     Active Substance: MYCOPHENOLATE MOFETIL
     Indication: Lupus nephritis
     Dosage: DOSE: 1000 MG, (STARTED WITH 500 AS A TRAIL, INCREASED TO 1500, AND AGAIN BOUGHT DOWN TO 1000 AFTER THREE MONTHS) 300MG HCQ
  2. TELMISARTAN [Concomitant]
     Active Substance: TELMISARTAN

REACTIONS (6)
  - Weight increased [Unknown]
  - Off label use [Unknown]
  - Cushingoid [Unknown]
  - Lipohypertrophy [Unknown]
  - Insomnia [Unknown]
  - Skin striae [Unknown]
